FAERS Safety Report 5519382-2 (Version None)
Quarter: 2007Q4

REPORT INFORMATION
  Report Type: 
  Country: None (occurrence: None)
  Receive Date: 20071116
  Receipt Date: 20071106
  Transmission Date: 20080405
  Serious: Yes (Other)
  Sender: FDA-Public Use
  Company Number: JP-WYE-H01139107

PATIENT
  Sex: Female

DRUGS (1)
  1. TRIQUILAR-28 [Suspect]
     Dosage: UNKNOWN
     Route: 065

REACTIONS (1)
  - AORTIC THROMBOSIS [None]
